FAERS Safety Report 4860418-X (Version None)
Quarter: 2005Q4

REPORT INFORMATION
  Report Type: 
  Country: None (occurrence: None)
  Receive Date: 20051219
  Receipt Date: 20051018
  Transmission Date: 20060501
  Serious: Yes (Other)
  Sender: FDA-Public Use
  Company Number: PHFR2005CY03475

PATIENT
  Sex: Female

DRUGS (5)
  1. PERGOLIDE [Concomitant]
     Dosage: 1-2 TABLETS EVERY 6 HOURS
     Route: 048
  2. PERGOLIDE [Concomitant]
     Dosage: 2-3 MG/DAY
  3. COMTAN [Suspect]
     Indication: PARKINSON'S DISEASE
     Dosage: 200 MG, QID
     Route: 048
  4. CINAMET [Concomitant]
     Dosage: 125 MG, Q6H
  5. PRAVACHOL [Concomitant]
     Indication: BLOOD CHOLESTEROL INCREASED

REACTIONS (4)
  - ALANINE AMINOTRANSFERASE INCREASED [None]
  - ASPARTATE AMINOTRANSFERASE INCREASED [None]
  - DIARRHOEA [None]
  - HEPATIC ENZYME INCREASED [None]
